FAERS Safety Report 9454354 (Version 2)
Quarter: 2013Q4

REPORT INFORMATION
  Report Type: Spontaneous
  Country: US (occurrence: US)
  Receive Date: 20130812
  Receipt Date: 20131114
  Transmission Date: 20140711
  Serious: Yes (Other)
  Sender: FDA-Public Use
  Company Number: US-BRISTOL-MYERS SQUIBB COMPANY-19160209

PATIENT
  Age: 33 Year
  Sex: Female

DRUGS (2)
  1. ABILIFY [Suspect]
     Route: 048
     Dates: end: 20130915
  2. ALPRAZOLAM [Concomitant]
     Dosage: USED RARELY

REACTIONS (1)
  - Cholecystitis [Unknown]
